FAERS Safety Report 24664524 (Version 1)
Quarter: 2024Q4

REPORT INFORMATION
  Report Type: Spontaneous
  Country: US (occurrence: None)
  Receive Date: 20241125
  Receipt Date: 20241125
  Transmission Date: 20250115
  Serious: Yes (Other)
  Sender: Public
  Company Number: None

PATIENT
  Age: 83 Year
  Sex: Male

DRUGS (1)
  1. XDEMVY [Suspect]
     Active Substance: LOTILANER
     Indication: Acariasis
     Dosage: FREQUENCY : TWICE A DAY;?
     Route: 047
     Dates: start: 20240828, end: 20241104

REACTIONS (2)
  - Photosensitivity reaction [None]
  - Dyschromatopsia [None]

NARRATIVE: CASE EVENT DATE: 20241104
